FAERS Safety Report 22735303 (Version 9)
Quarter: 2024Q2

REPORT INFORMATION
  Report Type: Spontaneous
  Country: JP (occurrence: JP)
  Receive Date: 20230721
  Receipt Date: 20240429
  Transmission Date: 20240716
  Serious: Yes (Death, Other)
  Sender: FDA-Public Use
  Company Number: JP-ASTELLAS-2023JP008584

PATIENT
  Age: 6 Decade
  Sex: Female

DRUGS (9)
  1. XOSPATA [Suspect]
     Active Substance: GILTERITINIB
     Indication: Acute myeloid leukaemia
     Route: 048
     Dates: start: 20230616, end: 202306
  2. XOSPATA [Suspect]
     Active Substance: GILTERITINIB
     Dosage: 40 MG, ONCE DAILY, GASTRIC FISTULA
     Route: 050
     Dates: start: 202308, end: 202310
  3. XOSPATA [Suspect]
     Active Substance: GILTERITINIB
     Dosage: 80 MG, UNKNOWN FREQ., GASTRIC FISTULA
     Route: 050
     Dates: start: 20231208
  4. XOSPATA [Suspect]
     Active Substance: GILTERITINIB
     Dosage: 120 MG, UNKNOWN FREQ., GASTRIC FISTULA
     Route: 050
     Dates: start: 202312
  5. XOSPATA [Suspect]
     Active Substance: GILTERITINIB
     Dosage: 80 MG, UNKNOWN FREQ., GASTRIC FISTULA
     Route: 050
     Dates: start: 20231215
  6. XOSPATA [Suspect]
     Active Substance: GILTERITINIB
     Route: 065
     Dates: start: 202312
  7. FLUDARA [Suspect]
     Active Substance: FLUDARABINE PHOSPHATE
     Indication: Product used for unknown indication
     Dosage: UNK UNK, UNKNOWN FREQ.
     Route: 065
     Dates: start: 202310
  8. CYCLOSPORINE [Concomitant]
     Active Substance: CYCLOSPORINE
     Indication: Myelosuppression
     Dosage: UNK UNK, UNKNOWN FREQ.
     Route: 065
  9. AZACITIDINE [Concomitant]
     Active Substance: AZACITIDINE
     Indication: Product used for unknown indication
     Dosage: UNK UNK, UNKNOWN FREQ.
     Route: 065
     Dates: start: 20240108

REACTIONS (10)
  - Blast cell count increased [Recovered/Resolved]
  - White blood cell count increased [Recovered/Resolved]
  - Gastrointestinal stromal tumour [Not Recovered/Not Resolved]
  - Oesophageal obstruction [Recovering/Resolving]
  - Myelosuppression [Recovering/Resolving]
  - White blood cell count decreased [Recovering/Resolving]
  - Blast cell count increased [Not Recovered/Not Resolved]
  - Blast cell count increased [Fatal]
  - Product use issue [Unknown]
  - Product use issue [Unknown]

NARRATIVE: CASE EVENT DATE: 20230101
